FAERS Safety Report 4418089-2 (Version None)
Quarter: 2004Q3

REPORT INFORMATION
  Report Type: 
  Country: None (occurrence: None)
  Receive Date: 20040730
  Receipt Date: 20040720
  Transmission Date: 20050211
  Serious: Yes (Other)
  Sender: FDA-Public Use
  Company Number: DE-JNJFOC-20040503465

PATIENT
  Age: 9 Year
  Sex: Male
  Weight: 34 kg

DRUGS (1)
  1. CONCERTA [Suspect]
     Indication: ATTENTION DEFICIT/HYPERACTIVITY DISORDER
     Dosage: 36 MG, IN 1 DAY, ORAL
     Route: 048
     Dates: start: 20030401, end: 20040301

REACTIONS (4)
  - C-REACTIVE PROTEIN INCREASED [None]
  - CHOLESTASIS [None]
  - HEPATITIS [None]
  - RASH SCALY [None]
